FAERS Safety Report 7832282-8 (Version None)
Quarter: 2011Q4

REPORT INFORMATION
  Report Type: 
  Country: None (occurrence: None)
  Receive Date: 20111022
  Receipt Date: 20111018
  Transmission Date: 20120403
  Serious: Yes (Other)
  Sender: FDA-Public Use
  Company Number: US-BAYER-2011-101152

PATIENT
  Age: 82 Year
  Sex: Male

DRUGS (1)
  1. ASPIRIN [Suspect]

REACTIONS (1)
  - DEEP VEIN THROMBOSIS [None]
